FAERS Safety Report 6232742-X (Version None)
Quarter: 2009Q2

REPORT INFORMATION
  Report Type: 
  Country: None (occurrence: None)
  Receive Date: 20090612
  Receipt Date: 20090601
  Transmission Date: 20091009
  Serious: Yes (Other)
  Sender: FDA-Public Use
  Company Number: PAR_02888_2009

PATIENT
  Sex: Female

DRUGS (10)
  1. DOXYCYCLINE [Suspect]
     Indication: DRUG USE FOR UNKNOWN INDICATION
     Dosage: (DF)
     Dates: start: 20090217, end: 20090201
  2. PEGASYS [Suspect]
     Indication: HEPATITIS C
     Dosage: (180 ?G 1X/WEEK SUBCUTANEOUS)
     Route: 058
     Dates: start: 20081006
  3. RIBAVIRIN [Suspect]
     Indication: HEPATITIS C
     Dosage: (1200 MG)
     Dates: start: 20081006
  4. METOPROLOL SUCCINATE [Concomitant]
  5. AKARIN [Concomitant]
  6. KLONOPIN [Concomitant]
  7. APPETITE STIMULANTS [Concomitant]
  8. VALTREX [Concomitant]
  9. LEVOTHYROXINE SODIUM [Concomitant]
  10. UNSPECIFIED MEDICATION FOR ITCHING [Concomitant]

REACTIONS (4)
  - ANXIETY [None]
  - MALAISE [None]
  - RASH GENERALISED [None]
  - WHITE BLOOD CELL COUNT DECREASED [None]
